FAERS Safety Report 25479208 (Version 1)
Quarter: 2025Q2

REPORT INFORMATION
  Report Type: Spontaneous
  Country: US (occurrence: None)
  Receive Date: 20250625
  Receipt Date: 20250625
  Transmission Date: 20250717
  Serious: No
  Sender: FDA-CTU
  Company Number: None

PATIENT
  Age: 55 Year
  Sex: Female
  Weight: 72 kg

DRUGS (1)
  1. PREDNISONE [Suspect]
     Active Substance: PREDNISONE
     Indication: Bronchitis
     Route: 048
     Dates: start: 20250609, end: 20250615

REACTIONS (14)
  - Anxiety [None]
  - Nervousness [None]
  - Tremor [None]
  - Fatigue [None]
  - Depression [None]
  - Paranoia [None]
  - Insomnia [None]
  - Feeling abnormal [None]
  - Crying [None]
  - Disturbance in social behaviour [None]
  - Panic disorder [None]
  - Therapy interrupted [None]
  - Loss of personal independence in daily activities [None]
  - Mental disorder [None]

NARRATIVE: CASE EVENT DATE: 20250612
